FAERS Safety Report 17674557 (Version 2)
Quarter: 2020Q2

REPORT INFORMATION
  Report Type: Report from Study
  Country: US (occurrence: US)
  Receive Date: 20200416
  Receipt Date: 20200515
  Transmission Date: 20200714
  Serious: No
  Sender: FDA-Public Use
  Company Number: US-BIOVITRUM-2020US1100

PATIENT
  Sex: Female

DRUGS (12)
  1. KINERET [Suspect]
     Active Substance: ANAKINRA
     Indication: STILL^S DISEASE
     Route: 058
     Dates: start: 20200226
  2. INDOMETHACIN. [Concomitant]
     Active Substance: INDOMETHACIN
  3. BENADRYL [Concomitant]
     Active Substance: DIPHENHYDRAMINE HYDROCHLORIDE
  4. VITAMIN D [Concomitant]
     Active Substance: VITAMIN D NOS
  5. ZOFRAN [Concomitant]
     Active Substance: ONDANSETRON HYDROCHLORIDE
  6. PREDNISONE. [Concomitant]
     Active Substance: PREDNISONE
  7. VENTOLIN [Concomitant]
     Active Substance: ALBUTEROL SULFATE
  8. METHOTREXATE. [Concomitant]
     Active Substance: METHOTREXATE
  9. ALBUTEROL. [Concomitant]
     Active Substance: ALBUTEROL
  10. FOLIC ACID. [Concomitant]
     Active Substance: FOLIC ACID
  11. BACLOFEN. [Concomitant]
     Active Substance: BACLOFEN
  12. OMEPRAZOLE. [Concomitant]
     Active Substance: OMEPRAZOLE

REACTIONS (10)
  - Injection site erythema [Unknown]
  - Injection site swelling [Unknown]
  - Injection site urticaria [Unknown]
  - Weight increased [Unknown]
  - Injection site pain [Not Recovered/Not Resolved]
  - Rash [Unknown]
  - Injection site pruritus [Unknown]
  - Burning sensation [Not Recovered/Not Resolved]
  - Injection site bruising [Unknown]
  - Off label use [Unknown]
